FAERS Safety Report 20445520 (Version 2)
Quarter: 2022Q3

REPORT INFORMATION
  Report Type: Spontaneous
  Country: US (occurrence: None)
  Receive Date: 20220208
  Receipt Date: 20220729
  Transmission Date: 20221027
  Serious: Yes (Death, Other)
  Sender: FDA-Public Use
  Company Number: 2022A058662

PATIENT
  Age: 24458 Day
  Sex: Male
  Weight: 107 kg

DRUGS (64)
  1. NEXIUM [Suspect]
     Active Substance: ESOMEPRAZOLE MAGNESIUM
     Indication: Gastrooesophageal reflux disease
     Route: 048
     Dates: start: 2004, end: 2017
  2. NEXIUM [Suspect]
     Active Substance: ESOMEPRAZOLE MAGNESIUM
     Indication: Gastrooesophageal reflux disease
     Route: 048
     Dates: start: 2004, end: 2017
  3. NEXIUM [Suspect]
     Active Substance: ESOMEPRAZOLE MAGNESIUM
     Indication: Gastrooesophageal reflux disease
     Dosage: GENERIC
     Route: 065
     Dates: start: 2015, end: 2018
  4. NEXIUM [Suspect]
     Active Substance: ESOMEPRAZOLE MAGNESIUM
     Indication: Gastrooesophageal reflux disease
     Dosage: GENERIC
     Route: 065
     Dates: start: 2015, end: 2018
  5. PRILOSEC [Suspect]
     Active Substance: OMEPRAZOLE MAGNESIUM
     Indication: Gastrooesophageal reflux disease
     Dosage: GENERIC
     Route: 065
     Dates: start: 2010
  6. PRILOSEC [Suspect]
     Active Substance: OMEPRAZOLE MAGNESIUM
     Indication: Gastrooesophageal reflux disease
     Dosage: GENERIC
     Route: 065
     Dates: start: 2010
  7. PRILOSEC [Suspect]
     Active Substance: OMEPRAZOLE MAGNESIUM
     Indication: Gastrooesophageal reflux disease
     Route: 048
     Dates: start: 2016, end: 2017
  8. PRILOSEC [Suspect]
     Active Substance: OMEPRAZOLE MAGNESIUM
     Indication: Gastrooesophageal reflux disease
     Route: 048
     Dates: start: 2016, end: 2017
  9. PREVACID [Suspect]
     Active Substance: LANSOPRAZOLE
     Indication: Gastrooesophageal reflux disease
     Route: 065
     Dates: start: 2004, end: 2017
  10. PREVACID [Suspect]
     Active Substance: LANSOPRAZOLE
     Indication: Gastrooesophageal reflux disease
     Route: 065
     Dates: start: 2004, end: 2017
  11. PROTONIX [Suspect]
     Active Substance: PANTOPRAZOLE SODIUM
     Indication: Gastrooesophageal reflux disease
     Route: 065
     Dates: start: 2004, end: 2017
  12. PROTONIX [Suspect]
     Active Substance: PANTOPRAZOLE SODIUM
     Indication: Gastrooesophageal reflux disease
     Route: 065
     Dates: start: 2004, end: 2017
  13. PROTONIX [Suspect]
     Active Substance: PANTOPRAZOLE SODIUM
     Indication: Gastrooesophageal reflux disease
     Dosage: GENERIC
     Route: 065
     Dates: start: 2011, end: 2017
  14. PROTONIX [Suspect]
     Active Substance: PANTOPRAZOLE SODIUM
     Indication: Gastrooesophageal reflux disease
     Dosage: GENERIC
     Route: 065
     Dates: start: 2011, end: 2017
  15. BETAMETHASONE/KETOROLAC [Concomitant]
  16. TORADOL [Concomitant]
     Active Substance: KETOROLAC TROMETHAMINE
  17. MELOXICAM [Concomitant]
     Active Substance: MELOXICAM
  18. NAPROXEN [Concomitant]
     Active Substance: NAPROXEN
  19. TRAMADOL [Concomitant]
     Active Substance: TRAMADOL
  20. CEFAZOLIN [Concomitant]
     Active Substance: CEFAZOLIN
  21. CEFUROXIME [Concomitant]
     Active Substance: CEFUROXIME
  22. ACYCLOVIR [Concomitant]
     Active Substance: ACYCLOVIR
  23. ZITHROMAX [Concomitant]
     Active Substance: AZITHROMYCIN DIHYDRATE
  24. CIPROFLOXACIN [Concomitant]
     Active Substance: CIPROFLOXACIN
  25. GENTAMICIN [Concomitant]
     Active Substance: GENTAMICIN
  26. DOXYCYCLINE [Concomitant]
     Active Substance: DOXYCYCLINE
  27. LEVOFLOXACIN [Concomitant]
     Active Substance: LEVOFLOXACIN
  28. TRIMETHOPRIM [Concomitant]
     Active Substance: TRIMETHOPRIM
  29. TOBRAMYCIN [Concomitant]
     Active Substance: TOBRAMYCIN
  30. HYDRALAZINE [Concomitant]
     Active Substance: HYDRALAZINE HYDROCHLORIDE
  31. NOREPINEPHRINE [Concomitant]
     Active Substance: NOREPINEPHRINE
  32. BENADRYL [Concomitant]
     Active Substance: DIPHENHYDRAMINE HYDROCHLORIDE
  33. ONDANSETRON [Concomitant]
     Active Substance: ONDANSETRON
  34. ACETAMINOPHEN\HYDROCODONE BITARTRATE [Concomitant]
     Active Substance: ACETAMINOPHEN\HYDROCODONE BITARTRATE
  35. PROMETHAZINE [Concomitant]
     Active Substance: PROMETHAZINE HYDROCHLORIDE
  36. SYMBICORT [Concomitant]
     Active Substance: BUDESONIDE\FORMOTEROL FUMARATE DIHYDRATE
  37. METRONIDAZOLE [Concomitant]
     Active Substance: METRONIDAZOLE
  38. VIGAMOX [Concomitant]
     Active Substance: MOXIFLOXACIN HYDROCHLORIDE
  39. BENICAR [Concomitant]
     Active Substance: OLMESARTAN MEDOXOMIL
  40. URIBEL [Concomitant]
     Active Substance: HYOSCYAMINE SULFATE\METHENAMINE\METHYLENE BLUE\PHENYL SALICYLATE\SODIUM PHOSPHATE, MONOBASIC, MONOHY
  41. NITROSTAT [Concomitant]
     Active Substance: NITROGLYCERIN
  42. POLYETHYLENE GLYCOL [Concomitant]
     Active Substance: POLYETHYLENE GLYCOL
  43. PNEUMOVAX 23 [Concomitant]
     Active Substance: PNEUMOCOCCAL VACCINE, POLYVALENT 23
  44. STOOL SOFTNER [Concomitant]
  45. CYCLOBENZAPRINE [Concomitant]
     Active Substance: CYCLOBENZAPRINE
  46. CARISOPRODOL [Concomitant]
     Active Substance: CARISOPRODOL
  47. FLUVIRIN NOS [Concomitant]
     Active Substance: INFLUENZA VIRUS VACCINE
  48. BACITRACIN [Concomitant]
     Active Substance: BACITRACIN
  49. FLUOROMETHOLONE/AMINOQUINURIDE HYDROCHLORIDE/NEOMYCIN/PHENIRAMINE [Concomitant]
  50. DIOVAN [Concomitant]
     Active Substance: VALSARTAN
  51. AMOX/K- CLAV [Concomitant]
  52. GAVILYTE G [Concomitant]
     Active Substance: POLYETHYLENE GLYCOL 3350\POTASSIUM CHLORIDE\SODIUM BICARBONATE\SODIUM CHLORIDE\SODIUM SULFATE
  53. POTASSIUM CHLORIDE [Concomitant]
     Active Substance: POTASSIUM CHLORIDE
  54. FINASTERIDE [Concomitant]
     Active Substance: FINASTERIDE
  55. PHENAZOPYRIDINE HYDROCHLORIDE [Concomitant]
     Active Substance: PHENAZOPYRIDINE HYDROCHLORIDE
  56. LABETALOL [Concomitant]
     Active Substance: LABETALOL\LABETALOL HYDROCHLORIDE
  57. MORPHINE [Concomitant]
     Active Substance: MORPHINE
  58. SODIUM CHLORIDE [Concomitant]
     Active Substance: SODIUM CHLORIDE
  59. HEPARIN [Concomitant]
     Active Substance: HEPARIN SODIUM
  60. CALCIPOTRIENE [Concomitant]
     Active Substance: CALCIPOTRIENE
  61. CODEINE [Concomitant]
     Active Substance: CODEINE
  62. BETAMETHASONE DIPROPIONATE/ALLANTOIN [Concomitant]
  63. ZOSYN [Concomitant]
     Active Substance: PIPERACILLIN SODIUM\TAZOBACTAM SODIUM
  64. DEXTROSE [Concomitant]
     Active Substance: DEXTROSE

REACTIONS (5)
  - Malnutrition [Fatal]
  - Oesophageal obstruction [Fatal]
  - Chronic kidney disease [Not Recovered/Not Resolved]
  - Acute kidney injury [Not Recovered/Not Resolved]
  - Renal failure [Unknown]

NARRATIVE: CASE EVENT DATE: 20131111
